FAERS Safety Report 21447758 (Version 1)
Quarter: 2022Q4

REPORT INFORMATION
  Report Type: Spontaneous
  Country: FR (occurrence: FR)
  Receive Date: 20221012
  Receipt Date: 20221012
  Transmission Date: 20230113
  Serious: Yes (Life-Threatening, Hospitalization)
  Sender: FDA-Public Use
  Company Number: None

PATIENT
  Age: 30 Year
  Sex: Male

DRUGS (5)
  1. FLUOXETINE HYDROCHLORIDE [Suspect]
     Active Substance: FLUOXETINE HYDROCHLORIDE
     Indication: Product used for unknown indication
     Dosage: UNKNOWN, FLUOXETINE (CHLORHYDRATE DE), DURATION : 1 DAY
     Route: 065
     Dates: start: 20220715, end: 20220715
  2. TRAMADOL HYDROCHLORIDE [Suspect]
     Active Substance: TRAMADOL HYDROCHLORIDE
     Indication: Product used for unknown indication
     Dosage: UNKNOWN, CHLORHYDRATE DE TRAMADOL, DURATION : 1 DAY
     Route: 065
     Dates: start: 20220715, end: 20220715
  3. COCAINE [Suspect]
     Active Substance: COCAINE
     Indication: Product used for unknown indication
     Dosage: UNKNOWN, DURATION: 1 DAY
     Dates: start: 20220715, end: 20220715
  4. OXAZEPAM [Suspect]
     Active Substance: OXAZEPAM
     Indication: Product used for unknown indication
     Dosage: UNKNOWN, DURATION : 1 DAY
     Dates: start: 20220715, end: 20220715
  5. ALCOHOL [Suspect]
     Active Substance: ALCOHOL
     Indication: Product used for unknown indication
     Dosage: UNKNOWN, ALCOHOL , DURATION : 1 DAY
     Dates: start: 20220715, end: 20220715

REACTIONS (2)
  - Coma [Recovered/Resolved]
  - Drug abuse [Recovering/Resolving]

NARRATIVE: CASE EVENT DATE: 20220715
